FAERS Safety Report 25037752 (Version 1)
Quarter: 2025Q1

REPORT INFORMATION
  Report Type: Other
  Country: DK (occurrence: DK)
  Receive Date: 20250304
  Receipt Date: 20250304
  Transmission Date: 20250409
  Serious: Yes (Hospitalization)
  Sender: B BRAUN
  Company Number: DK-B.Braun Medical Inc.-2172165

PATIENT
  Age: 8 Year
  Sex: Male
  Weight: 21 kg

DRUGS (18)
  1. MEROPENEM [Suspect]
     Active Substance: MEROPENEM
     Indication: Abscess
  2. VALPROIC ACID [Interacting]
     Active Substance: VALPROIC ACID
  3. LEVOMEPROMAZINE [Concomitant]
     Active Substance: LEVOMEPROMAZINE
  4. MELATONIN [Concomitant]
     Active Substance: MELATONIN
  5. CLOBAZAM [Concomitant]
     Active Substance: CLOBAZAM
  6. LORAZEPAM [Concomitant]
     Active Substance: LORAZEPAM
  7. HALOPERIDOL [Concomitant]
     Active Substance: HALOPERIDOL
  8. LEVETIRACETAM [Concomitant]
     Active Substance: LEVETIRACETAM
  9. CLONAZEPAM [Concomitant]
     Active Substance: CLONAZEPAM
  10. MORPHINE [Concomitant]
     Active Substance: MORPHINE
  11. GABAPENTIN [Concomitant]
     Active Substance: GABAPENTIN
  12. ACETAMINOPHEN [Concomitant]
     Active Substance: ACETAMINOPHEN
  13. PROPOFOL [Concomitant]
     Active Substance: PROPOFOL
  14. FENTANYL [Concomitant]
     Active Substance: FENTANYL
  15. PHENOBARBITAL [Interacting]
     Active Substance: PHENOBARBITAL
  16. FOSPHENYTOIN [Interacting]
     Active Substance: FOSPHENYTOIN
  17. TOPIRAMATE [Interacting]
     Active Substance: TOPIRAMATE
  18. LAMOTRIGINE [Interacting]
     Active Substance: LAMOTRIGINE

REACTIONS (2)
  - Drug level below therapeutic [Recovering/Resolving]
  - Drug interaction [Recovered/Resolved]
